FAERS Safety Report 12236312 (Version 2)
Quarter: 2016Q2

REPORT INFORMATION
  Report Type: Spontaneous
  Country: US (occurrence: US)
  Receive Date: 20160404
  Receipt Date: 20160414
  Transmission Date: 20160815
  Serious: Yes (Death, Hospitalization)
  Sender: FDA-Public Use
  Company Number: US-ABBVIE-16P-163-1597410-00

PATIENT
  Age: 41 Year
  Sex: Female

DRUGS (6)
  1. VALPROIC ACID. [Suspect]
     Active Substance: VALPROIC ACID
     Indication: PRODUCT USED FOR UNKNOWN INDICATION
     Route: 065
  2. LITHIUM. [Concomitant]
     Active Substance: LITHIUM
     Indication: PRODUCT USED FOR UNKNOWN INDICATION
  3. CARBAMAZEPINE. [Suspect]
     Active Substance: CARBAMAZEPINE
     Indication: PRODUCT USED FOR UNKNOWN INDICATION
     Route: 065
  4. PARACETAMOL [Concomitant]
     Active Substance: ACETAMINOPHEN
     Indication: PRODUCT USED FOR UNKNOWN INDICATION
  5. ACETYLSALICYLIC ACID [Concomitant]
     Active Substance: ASPIRIN
     Indication: PRODUCT USED FOR UNKNOWN INDICATION
  6. METAMFETAMINE [Concomitant]
     Active Substance: METHAMPHETAMINE
     Indication: PRODUCT USED FOR UNKNOWN INDICATION

REACTIONS (15)
  - Cardiac arrest [Fatal]
  - Areflexia [Fatal]
  - Gastrointestinal sounds abnormal [Fatal]
  - Drug level increased [Fatal]
  - Coma scale abnormal [Fatal]
  - Bundle branch block right [Fatal]
  - Unresponsive to stimuli [Fatal]
  - Acidosis [Fatal]
  - Heart rate increased [Fatal]
  - Brain injury [Fatal]
  - Hypothermia [Fatal]
  - Blood pressure decreased [Fatal]
  - Electrocardiogram QT prolonged [Fatal]
  - Pupil fixed [Fatal]
  - Overdose [Fatal]
